FAERS Safety Report 9928079 (Version 1)
Quarter: 2014Q1

REPORT INFORMATION
  Report Type: Spontaneous
  Country: US (occurrence: None)
  Receive Date: 20140226
  Receipt Date: 20140226
  Transmission Date: 20141002
  Serious: Yes (Hospitalization)
  Sender: FDA-Public Use
  Company Number: None

PATIENT
  Age: 74 Year
  Sex: Male
  Weight: 81.3 kg

DRUGS (1)
  1. ATORVASTATIN [Suspect]
     Route: 048
     Dates: start: 20121025, end: 20130707

REACTIONS (19)
  - Rhabdomyolysis [None]
  - Diarrhoea [None]
  - Nausea [None]
  - Retching [None]
  - Arthralgia [None]
  - Back pain [None]
  - Asthenia [None]
  - Myalgia [None]
  - Viral infection [None]
  - Pain in extremity [None]
  - Fall [None]
  - Injury [None]
  - Hypoaesthesia [None]
  - Bursitis [None]
  - Polymyositis [None]
  - Abdominal pain [None]
  - Vomiting [None]
  - Pain in extremity [None]
  - Osteoarthritis [None]
